FAERS Safety Report 6497013-5 (Version None)
Quarter: 2009Q4

REPORT INFORMATION
  Report Type: 
  Country: None (occurrence: None)
  Receive Date: 20091215
  Receipt Date: 20081230
  Transmission Date: 20100525
  Serious: No
  Sender: FDA-Public Use
  Company Number: A0762046A

PATIENT
  Age: 63 Year
  Sex: Male

DRUGS (6)
  1. AVODART [Suspect]
     Indication: BENIGN PROSTATIC HYPERPLASIA
     Dosage: 1CAP PER DAY
     Route: 048
     Dates: start: 20080301, end: 20081101
  2. LOPRESSOR [Concomitant]
  3. AMIODARONE HCL [Concomitant]
  4. SIMVASTATIN [Concomitant]
  5. FLOMAX [Concomitant]
  6. ASPIRIN [Concomitant]

REACTIONS (2)
  - BREAST TENDERNESS [None]
  - GYNAECOMASTIA [None]
